FAERS Safety Report 18311950 (Version 2)
Quarter: 2020Q4

REPORT INFORMATION
  Report Type: Spontaneous
  Country: IT (occurrence: IT)
  Receive Date: 20200925
  Receipt Date: 20201028
  Transmission Date: 20210113
  Serious: Yes (Other)
  Sender: FDA-Public Use
  Company Number: IT-ACCORD-192284

PATIENT
  Age: 68 Year
  Sex: Female

DRUGS (2)
  1. ATORVASTATIN/ATORVASTATIN CALCIUM [Suspect]
     Active Substance: ATORVASTATIN CALCIUM
     Indication: MYOCARDIAL ISCHAEMIA
  2. ROSUVASTATIN. [Suspect]
     Active Substance: ROSUVASTATIN

REACTIONS (1)
  - Liver disorder [Unknown]
